FAERS Safety Report 11488651 (Version 1)
Quarter: 2015Q3

REPORT INFORMATION
  Report Type: Spontaneous
  Country: US (occurrence: US)
  Receive Date: 20150910
  Receipt Date: 20150910
  Transmission Date: 20151125
  Serious: No
  Sender: FDA-Public Use
  Company Number: US-ROCHE-1453312

PATIENT
  Sex: Female

DRUGS (1)
  1. PEGASYS [Suspect]
     Active Substance: PEGINTERFERON ALFA-2A
     Indication: CHRONIC HEPATITIS C
     Route: 058
     Dates: start: 20140813

REACTIONS (9)
  - Anxiety [Unknown]
  - Bone pain [Unknown]
  - Arthralgia [Unknown]
  - Diarrhoea [Unknown]
  - Chills [Unknown]
  - Decreased appetite [Unknown]
  - Insomnia [Unknown]
  - Night sweats [Unknown]
  - Tremor [Unknown]
